FAERS Safety Report 22220382 (Version 2)
Quarter: 2023Q2

REPORT INFORMATION
  Report Type: Spontaneous
  Country: PL (occurrence: PL)
  Receive Date: 20230417
  Receipt Date: 20230508
  Transmission Date: 20230722
  Serious: Yes (Other)
  Sender: FDA-Public Use
  Company Number: PL-002147023-NVSC2023PL083627

PATIENT

DRUGS (1)
  1. RUXOLITINIB [Suspect]
     Active Substance: RUXOLITINIB
     Indication: Product used for unknown indication
     Dosage: 7.5 MG, BID
     Route: 065
     Dates: start: 2016

REACTIONS (1)
  - Myelofibrosis [Unknown]

NARRATIVE: CASE EVENT DATE: 20220101
